FAERS Safety Report 21441067 (Version 1)
Quarter: 2022Q4

REPORT INFORMATION
  Report Type: Spontaneous
  Country: GB (occurrence: None)
  Receive Date: 20221011
  Receipt Date: 20221011
  Transmission Date: 20230113
  Serious: Yes (Other)
  Sender: FDA-Public Use
  Company Number: 2022A342675

PATIENT
  Age: 73 Year
  Sex: Female
  Weight: 107 kg

DRUGS (17)
  1. DAPAGLIFLOZIN [Suspect]
     Active Substance: DAPAGLIFLOZIN
     Indication: Cardiac failure
     Dosage: 10
     Route: 048
     Dates: start: 20220706
  2. APIXABAN [Concomitant]
     Active Substance: APIXABAN
     Route: 065
     Dates: start: 20220706
  3. ATORVASTATIN [Concomitant]
     Active Substance: ATORVASTATIN
     Indication: Blood cholesterol increased
     Route: 065
     Dates: start: 20220823
  4. BISOPROLOL [Concomitant]
     Active Substance: BISOPROLOL
     Route: 065
     Dates: start: 20220706
  5. CODEINE PHOSPHATE [Concomitant]
     Active Substance: CODEINE PHOSPHATE
     Dosage: ONE OR TWO TO BE TAKEN EVERY FOUR HOURS
     Route: 065
     Dates: start: 20220706
  6. DOXYCYCLINE [Concomitant]
     Active Substance: DOXYCYCLINE
     Dosage: TAKE TWO CAPSULES AS A SINGLE DOSE ON THE FIRST
     Route: 065
     Dates: start: 20220816, end: 20220823
  7. ENTRESTO [Concomitant]
     Active Substance: SACUBITRIL\VALSARTAN
     Dosage: AS PER HEART SPECIALIST NURSE
     Route: 065
     Dates: start: 20220816, end: 20220906
  8. ESTRADIOL [Concomitant]
     Active Substance: ESTRADIOL
     Dosage: TO BE INSERTED EACH NIGHT FOR 2-3 WEEKS THE
     Route: 065
     Dates: start: 20220706, end: 20220922
  9. FEXOFENADINE [Concomitant]
     Active Substance: FEXOFENADINE HYDROCHLORIDE
     Route: 065
     Dates: start: 20220706
  10. FUROSEMIDE [Concomitant]
     Active Substance: FUROSEMIDE
     Dosage: EACH MORNING
     Route: 065
     Dates: start: 20220706
  11. NITROGLYCERIN [Concomitant]
     Active Substance: NITROGLYCERIN
     Route: 065
     Dates: start: 20220706
  12. OMEPRAZOLE [Concomitant]
     Active Substance: OMEPRAZOLE
     Route: 065
     Dates: start: 20220706
  13. ACETAMINOPHEN [Concomitant]
     Active Substance: ACETAMINOPHEN
     Route: 065
     Dates: start: 20220830
  14. SACUBITRIL [Concomitant]
     Active Substance: SACUBITRIL
     Indication: Cardiac failure
     Route: 065
     Dates: start: 20220804
  15. SPIRONOLACTONE [Concomitant]
     Active Substance: SPIRONOLACTONE
     Route: 065
     Dates: start: 20220706
  16. TEMAZEPAM [Concomitant]
     Active Substance: TEMAZEPAM
     Dosage: AT NIGHT (NOT WITH PROMETHAZINE)
     Route: 065
     Dates: start: 20220706
  17. VAGIRUX [Concomitant]
     Route: 007
     Dates: start: 20220922

REACTIONS (1)
  - Candida infection [Recovering/Resolving]
